FAERS Safety Report 10453852 (Version 1)
Quarter: 2014Q3

REPORT INFORMATION
  Report Type: Spontaneous
  Country: US (occurrence: US)
  Receive Date: 20140915
  Receipt Date: 20140915
  Transmission Date: 20150326
  Serious: No
  Sender: FDA-Public Use
  Company Number: US-BRISTOL-MYERS SQUIBB COMPANY-21312061

PATIENT
  Age: 73 Year
  Sex: Female
  Weight: 72.56 kg

DRUGS (3)
  1. ELIQUIS [Suspect]
     Active Substance: APIXABAN
  2. METOPROLOL [Concomitant]
     Active Substance: METOPROLOL
  3. XARELTO [Suspect]
     Active Substance: RIVAROXABAN

REACTIONS (3)
  - Somnolence [Unknown]
  - Fatigue [Unknown]
  - Heart rate increased [Unknown]
